FAERS Safety Report 7268978-9 (Version None)
Quarter: 2011Q1

REPORT INFORMATION
  Report Type: 
  Country: None (occurrence: None)
  Receive Date: 20110201
  Receipt Date: 20110128
  Transmission Date: 20110831
  Serious: Yes (Life-Threatening, Hospitalization)
  Sender: FDA-Public Use
  Company Number: US-BRISTOL-MYERS SQUIBB COMPANY-15491509

PATIENT
  Age: 70 Year
  Sex: Female

DRUGS (21)
  1. DESYREL [Concomitant]
     Indication: DEPRESSION
     Route: 048
     Dates: start: 20090427
  2. PROTONIX [Concomitant]
     Indication: GASTROOESOPHAGEAL REFLUX DISEASE
     Dosage: 4APR2003-24AUG10,30AUG10-ONG
     Route: 048
     Dates: start: 20030404
  3. FOLIC ACID [Concomitant]
     Route: 048
     Dates: start: 20090101
  4. NAMENDA [Concomitant]
     Indication: DEMENTIA ALZHEIMER'S TYPE
     Route: 048
     Dates: start: 20100801
  5. PREMARIN [Concomitant]
     Indication: MENOPAUSE
     Route: 048
     Dates: start: 20030904
  6. DETROL LA [Concomitant]
     Indication: HYPERTONIC BLADDER
     Dosage: 24SEP09-24AUG10,30AUG10-ONG
     Route: 048
     Dates: start: 20090924
  7. BLINDED: ENOXAPARIN SODIUM [Suspect]
     Indication: EMBOLISM ARTERIAL
  8. NIFEDIPINE [Concomitant]
     Indication: HYPERTENSION
     Route: 048
     Dates: start: 20070103
  9. PHENERGAN HCL [Concomitant]
     Indication: NAUSEA
     Dosage: 1 DF = 12.5 MG OR 25 MG
     Route: 048
     Dates: start: 20091218
  10. SYNTHROID [Concomitant]
     Indication: HYPOTHYROIDISM
     Route: 048
     Dates: start: 20051122
  11. PRISTIQ [Concomitant]
     Indication: DEPRESSION
     Route: 048
     Dates: start: 20100801
  12. BLINDED: PLACEBO [Suspect]
     Indication: EMBOLISM ARTERIAL
     Dosage: RESTARTED ON 27-JAN-2011
     Route: 048
     Dates: start: 20100826
  13. LOMOTIL [Concomitant]
     Indication: DIARRHOEA
     Route: 048
     Dates: start: 20070801
  14. METFORMIN HCL [Concomitant]
     Indication: DIABETES MELLITUS
     Route: 048
     Dates: start: 20031112
  15. KLONOPIN [Concomitant]
     Indication: ANXIETY
     Route: 048
     Dates: start: 20090219
  16. WARFARIN SODIUM [Suspect]
     Indication: EMBOLISM ARTERIAL
     Dosage: RESTARTED ON 27-JAN-2011
     Route: 048
     Dates: start: 20100826
  17. ISOSORBIDE DINITRATE [Concomitant]
     Indication: ANGINA PECTORIS
     Route: 048
     Dates: start: 20091218
  18. MOBIC [Concomitant]
     Indication: OSTEOARTHRITIS
     Dosage: PRN
     Route: 048
     Dates: start: 20050222
  19. BLINDED: APIXABAN [Suspect]
     Indication: EMBOLISM ARTERIAL
     Dosage: RESTARTED ON 27-JAN-2011
     Route: 048
     Dates: start: 20100826
  20. COUMADIN [Suspect]
  21. LOVAZA [Concomitant]
     Indication: DYSLIPIDAEMIA
     Route: 048
     Dates: start: 20090813

REACTIONS (2)
  - INTERNATIONAL NORMALISED RATIO INCREASED [None]
  - TOXICITY TO VARIOUS AGENTS [None]
